FAERS Safety Report 26055116 (Version 3)
Quarter: 2025Q4

REPORT INFORMATION
  Report Type: Spontaneous
  Country: EU (occurrence: EU)
  Receive Date: 20251117
  Receipt Date: 20251230
  Transmission Date: 20260118
  Serious: Yes (Other)
  Sender: SANDOZ
  Company Number: EU-TAKEDA-2025TUS081856

PATIENT
  Age: 22 Year
  Sex: Male
  Weight: 75 kg

DRUGS (9)
  1. AMLODIPINE [Suspect]
     Active Substance: AMLODIPINE BESYLATE
     Indication: Blood pressure abnormal
     Dosage: 5 MILLIGRAM, QD (START DATE: 15-AUG-2023)
  2. CANDESARTAN [Suspect]
     Active Substance: CANDESARTAN
     Indication: Blood pressure abnormal
     Dosage: 32 MG, QD (START DATE: 25-SEP-2023)
  3. METHOTREXATE [Suspect]
     Active Substance: METHOTREXATE
     Indication: Product used for unknown indication
     Dosage: UNK (START DATE: JAN-2025)
  4. INFLIXIMAB [Suspect]
     Active Substance: INFLIXIMAB
     Indication: Product used for unknown indication
     Dosage: 400 MG (START DATE: 03-JAN-2025)
  5. INFLIXIMAB [Suspect]
     Active Substance: INFLIXIMAB
     Dosage: 600 MG (START DATE: 17-JAN-2025)
  6. INFLIXIMAB [Suspect]
     Active Substance: INFLIXIMAB
     Dosage: 600 MG
  7. ENTYVIO [Suspect]
     Active Substance: VEDOLIZUMAB
     Indication: Inflammatory bowel disease
     Dosage: 300 MG (START DATE: 20-MAR-2025; STOP DATE: 30-SEP-2025)
  8. ENTYVIO [Suspect]
     Active Substance: VEDOLIZUMAB
     Indication: Colitis ulcerative
  9. PENTASA [Suspect]
     Active Substance: MESALAMINE
     Indication: Product used for unknown indication
     Dosage: UNK (START DATE: 29-NOV-2922)

REACTIONS (19)
  - Cytomegalovirus infection reactivation [Recovered/Resolved]
  - Respiratory tract infection [Unknown]
  - Rhinitis [Unknown]
  - General physical health deterioration [Unknown]
  - Oropharyngeal discomfort [Unknown]
  - Blood pressure fluctuation [Unknown]
  - Brain fog [Unknown]
  - Musculoskeletal discomfort [Unknown]
  - Rhinorrhoea [Unknown]
  - Vertigo [Not Recovered/Not Resolved]
  - Hyperhidrosis [Unknown]
  - Paraesthesia [Unknown]
  - Back pain [Unknown]
  - Abdominal pain upper [Unknown]
  - Dizziness [Not Recovered/Not Resolved]
  - Headache [Unknown]
  - Nervousness [Unknown]
  - Fatigue [Not Recovered/Not Resolved]
  - Drug effect less than expected [Unknown]

NARRATIVE: CASE EVENT DATE: 20250101
